FAERS Safety Report 21208512 (Version 1)
Quarter: 2022Q3

REPORT INFORMATION
  Report Type: Spontaneous
  Country: US (occurrence: US)
  Receive Date: 20220812
  Receipt Date: 20220812
  Transmission Date: 20221027
  Serious: Yes (Other)
  Sender: FDA-Public Use
  Company Number: US-ELI_LILLY_AND_COMPANY-US202208001859

PATIENT
  Sex: Female

DRUGS (1)
  1. TRULICITY [Suspect]
     Active Substance: DULAGLUTIDE
     Indication: Product used for unknown indication
     Dosage: 1.5 MG, UNKNOWN
     Route: 065

REACTIONS (7)
  - Macular hole [Unknown]
  - Insomnia [Unknown]
  - Memory impairment [Unknown]
  - Oropharyngeal discomfort [Not Recovered/Not Resolved]
  - Depressed mood [Unknown]
  - Decreased activity [Unknown]
  - Abdominal discomfort [Unknown]
